FAERS Safety Report 7174560-4 (Version None)
Quarter: 2010Q4

REPORT INFORMATION
  Report Type: 
  Country: None (occurrence: None)
  Receive Date: 20101219
  Receipt Date: 20100331
  Transmission Date: 20110411
  Serious: No
  Sender: FDA-Public Use
  Company Number: US-AMGEN-KDL403176

PATIENT

DRUGS (11)
  1. ENBREL [Suspect]
     Indication: RHEUMATOID ARTHRITIS
     Dosage: 50 MG, QWK
     Dates: start: 20020101
  2. PREDNISONE [Concomitant]
     Dosage: 5 MG, UNK
  3. LEFLUNOMIDE [Concomitant]
     Dosage: 20 MG, UNK
  4. TRAMADOL HCL [Concomitant]
     Dosage: 50 MG, UNK
  5. LOVASTATIN [Concomitant]
     Dosage: 20 MG, UNK
  6. ATORVASTATIN CALCIUM [Concomitant]
     Dosage: UNK UNK, UNK
  7. TOPROL-XL [Concomitant]
     Dosage: 25 MG, UNK
  8. LISINOPRIL AND HYDROCHLOROTHIAZIDE [Concomitant]
     Dosage: UNK UNK, UNK
  9. MULTI-VITAMINS [Concomitant]
     Dosage: UNK UNK, UNK
  10. FISH OIL [Concomitant]
     Dosage: UNK UNK, UNK
  11. ASPIRIN [Concomitant]
     Dosage: UNK UNK, UNK

REACTIONS (2)
  - FATIGUE [None]
  - INJECTION SITE PRURITUS [None]
